FAERS Safety Report 15583100 (Version 1)
Quarter: 2018Q4

REPORT INFORMATION
  Report Type: Spontaneous
  Country: US (occurrence: US)
  Receive Date: 20181103
  Receipt Date: 20181103
  Transmission Date: 20190205
  Serious: No
  Sender: FDA-Public Use
  Company Number: US-TEVA-2018-US-969530

PATIENT
  Sex: Female

DRUGS (4)
  1. CLONAZEPAM. [Suspect]
     Active Substance: CLONAZEPAM
  2. TENORMIN [Concomitant]
     Active Substance: ATENOLOL
  3. NEXIUM [Concomitant]
     Active Substance: ESOMEPRAZOLE MAGNESIUM
  4. FELXERIL [Concomitant]

REACTIONS (8)
  - Irritability [Unknown]
  - Screaming [Unknown]
  - Drug ineffective [Unknown]
  - Palpitations [Unknown]
  - Nervousness [Unknown]
  - Nightmare [Unknown]
  - Frustration tolerance decreased [Unknown]
  - Product substitution issue [Unknown]
